FAERS Safety Report 15681667 (Version 1)
Quarter: 2018Q4

REPORT INFORMATION
  Report Type: Spontaneous
  Country: US (occurrence: US)
  Receive Date: 20181203
  Receipt Date: 20181203
  Transmission Date: 20190205
  Serious: Yes (Hospitalization)
  Sender: FDA-Public Use
  Company Number: US-VERTEX PHARMACEUTICALS-2018-008923

PATIENT
  Sex: Female

DRUGS (28)
  1. ADVIL (MEFENAMIC ACID) [Concomitant]
     Active Substance: MEFENAMIC ACID
  2. PERTZYE [Concomitant]
     Active Substance: PANCRELIPASE AMYLASE\PANCRELIPASE LIPASE\PANCRELIPASE PROTEASE
  3. PROAIR HFA [Concomitant]
     Active Substance: ALBUTEROL SULFATE
  4. ACYCLOVIR                          /00587301/ [Concomitant]
     Active Substance: ACYCLOVIR
  5. AZITHROMYCIN ANHYDROUS. [Concomitant]
     Active Substance: AZITHROMYCIN ANHYDROUS
     Dosage: MON/WED/FRI
  6. AQUADEKS                           /07679501/ [Concomitant]
     Active Substance: MINERALS\VITAMINS
  7. COMPAZINE                          /00013302/ [Concomitant]
     Active Substance: PROCHLORPERAZINE EDISYLATE
  8. DIPHENHYDRAMINE. [Concomitant]
     Active Substance: DIPHENHYDRAMINE
  9. PROMETHAZINE [Concomitant]
     Active Substance: PROMETHAZINE\PROMETHAZINE HYDROCHLORIDE
  10. PULMOZYME [Concomitant]
     Active Substance: DORNASE ALFA
  11. TYLENOL [Concomitant]
     Active Substance: ACETAMINOPHEN
  12. ATIVAN [Concomitant]
     Active Substance: LORAZEPAM
  13. LAMICTAL [Concomitant]
     Active Substance: LAMOTRIGINE
  14. LOVENOX [Concomitant]
     Active Substance: ENOXAPARIN SODIUM
  15. ABILIFY [Concomitant]
     Active Substance: ARIPIPRAZOLE
  16. ADVAIR HFA [Concomitant]
     Active Substance: FLUTICASONE PROPIONATE\SALMETEROL XINAFOATE
  17. CARISOPRODOL. [Concomitant]
     Active Substance: CARISOPRODOL
  18. FIORICET [Concomitant]
     Active Substance: ACETAMINOPHEN\BUTALBITAL\CAFFEINE
  19. SEROQUEL [Concomitant]
     Active Substance: QUETIAPINE FUMARATE
  20. TIZANIDINE. [Concomitant]
     Active Substance: TIZANIDINE
  21. TOBRAMYCIN. [Concomitant]
     Active Substance: TOBRAMYCIN
  22. TOPAMAX [Concomitant]
     Active Substance: TOPIRAMATE
  23. URSODIOL. [Concomitant]
     Active Substance: URSODIOL
  24. CIPRODEX                           /00697202/ [Concomitant]
  25. FOLIC ACID. [Concomitant]
     Active Substance: FOLIC ACID
  26. GABAPENTIN. [Concomitant]
     Active Substance: GABAPENTIN
  27. ORKAMBI [Suspect]
     Active Substance: IVACAFTOR\LUMACAFTOR
     Indication: CYSTIC FIBROSIS
     Dosage: 2 DOSAGE FORM (200/125 MG EACH), BID
     Route: 048
  28. PROZAC [Concomitant]
     Active Substance: FLUOXETINE HYDROCHLORIDE

REACTIONS (1)
  - Hospitalisation [Not Recovered/Not Resolved]

NARRATIVE: CASE EVENT DATE: 2018
